FAERS Safety Report 8486679-6 (Version None)
Quarter: 2012Q3

REPORT INFORMATION
  Report Type: 
  Country: None (occurrence: None)
  Receive Date: 20120703
  Receipt Date: 20120625
  Transmission Date: 20120928
  Serious: Yes (Hospitalization)
  Sender: FDA-Public Use
  Company Number: JP-BRISTOL-MYERS SQUIBB COMPANY-16685125

PATIENT
  Age: 56 Year
  Sex: Male

DRUGS (3)
  1. AVASTIN [Suspect]
     Indication: LUNG NEOPLASM MALIGNANT
     Dates: start: 20120528, end: 20120101
  2. PARAPLATIN AQ [Suspect]
     Indication: LUNG NEOPLASM MALIGNANT
     Dates: start: 20120521, end: 20120528
  3. TAXOL [Suspect]
     Indication: LUNG NEOPLASM MALIGNANT
     Dates: start: 20120521, end: 20120528

REACTIONS (1)
  - PNEUMONITIS [None]
